FAERS Safety Report 4928295-6 (Version None)
Quarter: 2006Q1

REPORT INFORMATION
  Report Type: 
  Country: None (occurrence: None)
  Receive Date: 20060228
  Receipt Date: 20051012
  Transmission Date: 20060701
  Serious: Yes (Hospitalization)
  Sender: FDA-Public Use
  Company Number: US-MERCK-0510USA06874

PATIENT
  Age: 52 Year
  Sex: Female
  Weight: 70 kg

DRUGS (1)
  1. VIOXX [Suspect]
     Indication: ARTHRALGIA
     Route: 048
     Dates: start: 20010301, end: 20031001

REACTIONS (4)
  - ACUTE MYOCARDIAL INFARCTION [None]
  - ARTERIAL RUPTURE [None]
  - BACK DISORDER [None]
  - NECK DEFORMITY [None]
